FAERS Safety Report 21179037 (Version 1)
Quarter: 2022Q3

REPORT INFORMATION
  Report Type: Spontaneous
  Country: US (occurrence: None)
  Receive Date: 20220805
  Receipt Date: 20220805
  Transmission Date: 20221027
  Serious: Yes (Hospitalization)
  Sender: FDA-Public Use
  Company Number: None

PATIENT
  Sex: Male
  Weight: 136.3 kg

DRUGS (2)
  1. CARBOPLATIN [Suspect]
     Active Substance: CARBOPLATIN
     Dates: end: 20220616
  2. PACLITAXEL [Suspect]
     Active Substance: PACLITAXEL
     Dates: end: 20220616

REACTIONS (11)
  - Adult failure to thrive [None]
  - Oesophageal carcinoma [None]
  - Oral herpes [None]
  - Oesophagitis [None]
  - Thrombocytopenia [None]
  - Obesity [None]
  - Hypoxia [None]
  - Bronchitis [None]
  - Hypoventilation [None]
  - Lymphadenopathy [None]
  - Oral candidiasis [None]

NARRATIVE: CASE EVENT DATE: 20220720
